FAERS Safety Report 18235667 (Version 1)
Quarter: 2020Q3

REPORT INFORMATION
  Report Type: Spontaneous
  Country: SA (occurrence: SA)
  Receive Date: 20200905
  Receipt Date: 20200905
  Transmission Date: 20201103
  Serious: Yes (Hospitalization, Other)
  Sender: FDA-Public Use
  Company Number: SA-AXELLIA-003343

PATIENT
  Age: 56 Year
  Sex: Male

DRUGS (3)
  1. COLISTIN [Suspect]
     Active Substance: COLISTIN
     Indication: ACINETOBACTER INFECTION
     Dosage: 9 MILLION UNITS STAT FOLLOWED?BY 3 MILLION UNITS IV Q8 HOURS
     Route: 042
  2. VANCOMYCIN [Concomitant]
     Active Substance: VANCOMYCIN
     Indication: ACINETOBACTER INFECTION
     Dosage: 1 G IV Q12 HOURS
     Route: 042
  3. MEROPENEM. [Concomitant]
     Active Substance: MEROPENEM
     Indication: ACINETOBACTER INFECTION
     Dosage: 2 G IV Q8 HOURS
     Route: 042

REACTIONS (6)
  - Anaphylactoid reaction [Unknown]
  - Tachycardia [Unknown]
  - Hypotension [Unknown]
  - Restlessness [Unknown]
  - Wheezing [Unknown]
  - Chills [Unknown]
